FAERS Safety Report 5081516-4 (Version None)
Quarter: 2006Q3

REPORT INFORMATION
  Report Type: 
  Country: None (occurrence: None)
  Receive Date: 20060815
  Receipt Date: 20060815
  Transmission Date: 20061208
  Serious: Yes (Hospitalization)
  Sender: FDA-Public Use
  Company Number: None

PATIENT
  Age: 58 Year
  Sex: Male
  Weight: 90.7 kg

DRUGS (1)
  1. QUETIAPINE 100 MG [Suspect]
     Indication: POST-TRAUMATIC STRESS DISORDER
     Dosage: 250 MG HS PO  3.5 YEARS
     Route: 048

REACTIONS (5)
  - DRUG ABUSER [None]
  - INTENTIONAL OVERDOSE [None]
  - ROAD TRAFFIC ACCIDENT [None]
  - SOMNOLENCE [None]
  - SUICIDAL IDEATION [None]
